FAERS Safety Report 9398634 (Version 1)
Quarter: 2013Q3

REPORT INFORMATION
  Report Type: Spontaneous
  Country: GB (occurrence: GB)
  Receive Date: 20130712
  Receipt Date: 20130712
  Transmission Date: 20140515
  Serious: Yes (Death)
  Sender: FDA-Public Use
  Company Number: GB-ABBOTT-13P-167-1118870-00

PATIENT
  Age: 81 Year
  Sex: Female

DRUGS (13)
  1. HUMIRA [Suspect]
     Indication: RHEUMATOID ARTHRITIS
     Dates: start: 201101, end: 201212
  2. OMEPRAZOLE [Concomitant]
     Indication: GASTROOESOPHAGEAL REFLUX DISEASE
     Dates: start: 201301
  3. PARACETAMOL [Concomitant]
     Indication: PAIN
     Dates: end: 201301
  4. DICLOFENAC [Concomitant]
     Indication: PAIN
     Dates: end: 201301
  5. ASPIRIN [Concomitant]
     Indication: MYOCARDIAL ISCHAEMIA
     Dates: end: 201301
  6. NICORANDIL [Concomitant]
     Indication: MYOCARDIAL ISCHAEMIA
     Dates: end: 201301
  7. SULFASALAZINE [Concomitant]
     Indication: RHEUMATOID ARTHRITIS
     Dates: end: 201301
  8. ATORVASTATIN [Concomitant]
     Indication: MYOCARDIAL ISCHAEMIA
     Dosage: AT NIGHT
     Dates: end: 201301
  9. CALCICHEW D3 FORTE [Concomitant]
     Indication: PRODUCT USED FOR UNKNOWN INDICATION
     Dates: end: 201301
  10. BISOPROLOL [Concomitant]
     Indication: MYOCARDIAL ISCHAEMIA
     Dates: end: 201301
  11. GLYCERYL TRINITRATE SPRAY [Concomitant]
     Indication: MYOCARDIAL ISCHAEMIA
     Dates: end: 201301
  12. GAVISCON [Concomitant]
     Indication: GASTROOESOPHAGEAL REFLUX DISEASE
     Dates: end: 201301
  13. PARAFFINS [Concomitant]
     Indication: DRY SKIN
     Dosage: WHITE SOFT PARAFFIN/LIQUID PARAFFIN OINTMENT
     Dates: end: 201301

REACTIONS (1)
  - Ovarian cancer metastatic [Fatal]
